FAERS Safety Report 17211156 (Version 2)
Quarter: 2020Q1

REPORT INFORMATION
  Report Type: Spontaneous
  Country: TR (occurrence: TR)
  Receive Date: 20191228
  Receipt Date: 20200101
  Transmission Date: 20200409
  Serious: Yes (Other)
  Sender: FDA-Public Use
  Company Number: TR-AMGEN-TURSP2019215469

PATIENT
  Age: 44 Year
  Sex: Male

DRUGS (4)
  1. INDOMETHACIN [INDOMETACIN] [Concomitant]
     Active Substance: INDOMETHACIN
     Indication: ANKYLOSING SPONDYLITIS
     Dosage: 75 MILLIGRAM, QD
  2. ENBREL [Suspect]
     Active Substance: ETANERCEPT
     Indication: ANKYLOSING SPONDYLITIS
     Dosage: 25 MILLIGRAM, 2 TIMES/WK
     Route: 058
  3. ISONIASID [Concomitant]
     Active Substance: ISONIAZID
     Indication: PROPHYLAXIS
     Dosage: UNK
  4. ISONIASID [Concomitant]
     Active Substance: ISONIAZID
     Indication: ANKYLOSING SPONDYLITIS
     Dosage: 300 MILLIGRAM, QD

REACTIONS (1)
  - Hodgkin^s disease [Unknown]
